FAERS Safety Report 17255371 (Version 2)
Quarter: 2020Q1

REPORT INFORMATION
  Report Type: Report from Study
  Country: None (occurrence: LU)
  Receive Date: 20200110
  Receipt Date: 20200115
  Transmission Date: 20200409
  Serious: Yes (Hospitalization, Other)
  Sender: FDA-Public Use
  Company Number: LU-ABBVIE-20K-098-3226209-00

PATIENT
  Sex: Female

DRUGS (4)
  1. DUODOPA [Suspect]
     Active Substance: CARBIDOPA\LEVODOPA
     Dosage: MD=2.5ML, CD=2.3ML/HR DURING 16HRS, ED=1ML
     Route: 050
     Dates: start: 20190502, end: 20190503
  2. DUODOPA [Suspect]
     Active Substance: CARBIDOPA\LEVODOPA
     Dosage: DOSES CONTINUOUSLY MONITORED AND ADAPTED
     Route: 050
     Dates: start: 20190503, end: 20190828
  3. DUODOPA [Suspect]
     Active Substance: CARBIDOPA\LEVODOPA
     Indication: PARKINSON^S DISEASE
     Dosage: UNKNOWN DOSAGES
     Route: 050
     Dates: start: 20190430, end: 20190502
  4. DUODOPA [Suspect]
     Active Substance: CARBIDOPA\LEVODOPA
     Dosage: MD=3ML, CD=2.3ML/HR DURING 16HRS, ED=1ML
     Route: 050
     Dates: start: 20190828

REACTIONS (3)
  - Bradykinesia [Unknown]
  - Fall [Recovered/Resolved]
  - Subdural haematoma [Recovering/Resolving]
